FAERS Safety Report 8105243-1 (Version None)
Quarter: 2012Q1

REPORT INFORMATION
  Report Type: 
  Country: None (occurrence: None)
  Receive Date: 20120201
  Receipt Date: 20120127
  Transmission Date: 20120608
  Serious: No
  Sender: FDA-Public Use
  Company Number: US-B.I. PHARMACEUTICALS,INC./RIDGEFIELD-2012-BP-01333BP

PATIENT
  Sex: Female

DRUGS (4)
  1. VITAMIN D [Concomitant]
     Indication: PROPHYLAXIS
     Route: 048
  2. SPIRIVA [Suspect]
     Indication: EMPHYSEMA
     Dosage: 18 MCG
     Route: 055
     Dates: start: 20090101
  3. PROBIOTICS [Concomitant]
     Indication: PROPHYLAXIS
     Route: 048
  4. PROTONIX [Concomitant]
     Indication: HIATUS HERNIA
     Dosage: 80 MG
     Route: 048

REACTIONS (3)
  - DYSPNOEA [None]
  - WHEEZING [None]
  - PULMONARY CONGESTION [None]
